FAERS Safety Report 25278424 (Version 1)
Quarter: 2025Q2

REPORT INFORMATION
  Report Type: Spontaneous
  Country: US (occurrence: None)
  Receive Date: 20250507
  Receipt Date: 20250507
  Transmission Date: 20250716
  Serious: Yes (Other)
  Sender: FDA-CTU
  Company Number: None

PATIENT
  Age: 32 Year
  Sex: Female

DRUGS (1)
  1. GANIRELIX ACETATE [Suspect]
     Active Substance: GANIRELIX ACETATE
     Indication: Infertility female
     Dosage: 250MCG QD

REACTIONS (3)
  - Swollen tongue [None]
  - Pharyngeal swelling [None]
  - Injection site rash [None]

NARRATIVE: CASE EVENT DATE: 20250506
